FAERS Safety Report 22254263 (Version 1)
Quarter: 2023Q2

REPORT INFORMATION
  Report Type: Spontaneous
  Country: FR (occurrence: FR)
  Receive Date: 20230426
  Receipt Date: 20230426
  Transmission Date: 20230721
  Serious: Yes (Life-Threatening, Other)
  Sender: FDA-Public Use
  Company Number: None

PATIENT
  Age: 86 Year
  Sex: Male

DRUGS (28)
  1. ALFUZOSIN [Suspect]
     Active Substance: ALFUZOSIN
     Dosage: 10 MG
     Route: 048
     Dates: start: 20070724, end: 20070806
  2. ZOLPIDEM TARTRATE [Suspect]
     Active Substance: ZOLPIDEM TARTRATE
     Dosage: 10 MG
     Route: 048
     Dates: start: 20070726, end: 20070806
  3. VALIUM [Suspect]
     Active Substance: DIAZEPAM
     Dosage: 2 MG
     Route: 042
     Dates: start: 20070801, end: 20070806
  4. LIORESAL [Suspect]
     Active Substance: BACLOFEN
     Indication: Product used for unknown indication
     Dosage: UNK
     Route: 048
     Dates: start: 20070806
  5. LIORESAL [Suspect]
     Active Substance: BACLOFEN
     Dosage: 1.5 DF, DOSAGE REGIMEN: 5 MG THIRD PER DAY
     Route: 048
     Dates: start: 20070803
  6. LOXAPINE [Suspect]
     Active Substance: LOXAPINE
     Dosage: 10 DF, QD
     Route: 048
     Dates: start: 20070713, end: 20070806
  7. OMEPRAZOLE [Concomitant]
     Active Substance: OMEPRAZOLE
     Dates: start: 20070613
  8. LASIX [Concomitant]
     Active Substance: FUROSEMIDE
     Dates: start: 20070713, end: 20070718
  9. LASIX [Concomitant]
     Active Substance: FUROSEMIDE
     Dosage: UNK
     Dates: start: 20070726
  10. ACETAMINOPHEN [Concomitant]
     Active Substance: ACETAMINOPHEN
     Dosage: DOSAGE REGIMEN: 1 GRAM FOURTH PER DAY
     Dates: start: 20070801
  11. ATENOLOL [Concomitant]
     Active Substance: ATENOLOL
     Dates: start: 20070613
  12. ATENOLOL [Concomitant]
     Active Substance: ATENOLOL
     Dosage: UNK
     Dates: start: 20070713, end: 20070718
  13. BRICANYL [Concomitant]
     Active Substance: TERBUTALINE SULFATE
     Dates: start: 20070613, end: 20070713
  14. EQUANIL [Concomitant]
     Active Substance: MEPROBAMATE
     Dates: start: 20070613, end: 20070613
  15. LEVOFLOXACIN [Concomitant]
     Active Substance: LEVOFLOXACIN
     Dates: start: 20070613, end: 20070726
  16. ASPIRIN [Concomitant]
     Active Substance: ASPIRIN
     Dates: start: 20070713
  17. CIPROFLOXACIN [Concomitant]
     Active Substance: CIPROFLOXACIN
     Dosage: 1000 MG
     Dates: start: 20070613
  18. CIPROFLOXACIN [Concomitant]
     Active Substance: CIPROFLOXACIN
     Dosage: UNK
     Dates: start: 20070726, end: 20070803
  19. KARDEGIC [Concomitant]
     Active Substance: ASPIRIN DL-LYSINE
     Dates: start: 20070727
  20. IRBESARTAN [Concomitant]
     Active Substance: IRBESARTAN
     Dates: start: 20070718
  21. CEFTAZIDIME [Concomitant]
     Active Substance: CEFTAZIDIME
     Indication: Urinary tract infection
     Dosage: 3 G
     Dates: start: 20070613
  22. CEFTAZIDIME [Concomitant]
     Active Substance: CEFTAZIDIME
     Dosage: UNK
     Dates: start: 20070726, end: 20070803
  23. CALCIPARINE [Concomitant]
     Active Substance: HEPARIN CALCIUM
     Dosage: DOSAGE REPORTED AS 0.3 TWICE PER DAY
     Dates: start: 20070801
  24. CALCIPARINE [Concomitant]
     Active Substance: HEPARIN CALCIUM
     Dosage: UNK, DOSAGE REPORTED AS 0.25 TWICE PER DAY
     Dates: start: 20070726
  25. SEROPRAM [ESCITALOPRAM OXALATE] [Concomitant]
     Dates: start: 20070713
  26. RISPERDAL [Concomitant]
     Active Substance: RISPERIDONE
     Dates: start: 20070613
  27. INIPOMP [Concomitant]
     Active Substance: PANTOPRAZOLE SODIUM
     Dosage: UNK
     Dates: start: 20070713
  28. LORAZEPAM [Concomitant]
     Active Substance: LORAZEPAM
     Dates: start: 20070718

REACTIONS (1)
  - Coma [Recovered/Resolved]
